FAERS Safety Report 8553683-9 (Version None)
Quarter: 2012Q3

REPORT INFORMATION
  Report Type: 
  Country: None (occurrence: None)
  Receive Date: 20120731
  Receipt Date: 20120723
  Transmission Date: 20120928
  Serious: Yes (Life-Threatening)
  Sender: FDA-Public Use
  Company Number: CO-009507513-1109USA03330

PATIENT

DRUGS (9)
  1. EZETIMIBE/SIMVASTATIN [Suspect]
     Indication: ACUTE CORONARY SYNDROME
     Dosage: 10-40
     Route: 048
     Dates: start: 20091008
  2. PLACEBO [Suspect]
     Dosage: 40 MG, QD
     Route: 048
     Dates: start: 20091008
  3. PLACEBO [Suspect]
     Indication: ACUTE CORONARY SYNDROME
     Dosage: 40 MG, QD
     Route: 048
     Dates: start: 20091008
  4. AMLODIPINE [Concomitant]
     Route: 048
     Dates: start: 20070715
  5. METOPROLOL TARTRATE [Concomitant]
     Route: 048
     Dates: start: 20010715
  6. LOSARTAN POTASSIUM [Concomitant]
     Route: 048
     Dates: start: 20100627
  7. METFORMIN HYDROCHLORIDE [Concomitant]
     Route: 048
     Dates: start: 20050715
  8. INSULIN [Concomitant]
     Route: 048
     Dates: start: 20101107
  9. ASPIRIN [Concomitant]
     Route: 048
     Dates: start: 20010715

REACTIONS (1)
  - BREAST CANCER [None]
